APPROVED DRUG PRODUCT: PHERAZINE VC
Active Ingredient: PHENYLEPHRINE HYDROCHLORIDE; PROMETHAZINE HYDROCHLORIDE
Strength: 5MG/5ML;6.25MG/5ML
Dosage Form/Route: SYRUP;ORAL
Application: A088868 | Product #001
Applicant: HALSEY DRUG CO INC
Approved: Mar 2, 1987 | RLD: No | RS: No | Type: DISCN